FAERS Safety Report 4927369-3 (Version None)
Quarter: 2006Q1

REPORT INFORMATION
  Report Type: 
  Country: None (occurrence: None)
  Receive Date: 20060228
  Receipt Date: 20051006
  Transmission Date: 20060701
  Serious: No
  Sender: FDA-Public Use
  Company Number: US-GLAXOSMITHKLINE-A0577355A

PATIENT
  Age: 49 Year
  Sex: Female

DRUGS (8)
  1. IMITREX [Suspect]
     Indication: MIGRAINE
     Route: 058
  2. IMITREX [Suspect]
     Dosage: 50MG SINGLE DOSE
     Route: 048
  3. WARFARIN SODIUM [Concomitant]
  4. LAMOTRIGINE [Concomitant]
  5. ONDANSETRON [Concomitant]
  6. DARVOCET [Concomitant]
  7. OXYCODONE [Concomitant]
  8. MORPHINE [Concomitant]

REACTIONS (1)
  - DRUG INEFFECTIVE [None]
